FAERS Safety Report 5121672-2 (Version None)
Quarter: 2006Q4

REPORT INFORMATION
  Report Type: 
  Country: None (occurrence: None)
  Receive Date: 20061006
  Receipt Date: 20050516
  Transmission Date: 20070319
  Serious: Yes (Other)
  Sender: FDA-Public Use
  Company Number: US-GLAXOSMITHKLINE-A0559052A

PATIENT
  Age: 24 Year
  Sex: Female

DRUGS (7)
  1. PAXIL [Suspect]
     Indication: ANXIETY DISORDER
     Dosage: 20MG PER DAY
     Route: 048
  2. MARIJUANA [Concomitant]
  3. ORTHO TRI-CYCLEN [Concomitant]
  4. TYLENOL (CAPLET) [Concomitant]
  5. MOTRIN [Concomitant]
  6. HY-PHEN [Concomitant]
     Dates: start: 20011008
  7. PENICILLIN [Concomitant]
     Dates: start: 20011008

REACTIONS (19)
  - CONFUSIONAL STATE [None]
  - CYANOSIS [None]
  - DIZZINESS [None]
  - DRUG WITHDRAWAL SYNDROME [None]
  - ELECTROCARDIOGRAM ABNORMAL [None]
  - FEELING ABNORMAL [None]
  - GOITRE [None]
  - GRAND MAL CONVULSION [None]
  - HEADACHE [None]
  - LOSS OF CONSCIOUSNESS [None]
  - MUSCLE TWITCHING [None]
  - MYOPATHY [None]
  - OBESITY [None]
  - PARAESTHESIA [None]
  - PHARYNGEAL STENOSIS [None]
  - PHOTOPHOBIA [None]
  - SENSORY DISTURBANCE [None]
  - SOMNOLENCE [None]
  - VISUAL DISTURBANCE [None]
